FAERS Safety Report 5798214-1 (Version None)
Quarter: 2008Q3

REPORT INFORMATION
  Report Type: 
  Country: None (occurrence: None)
  Receive Date: 20080702
  Receipt Date: 20080623
  Transmission Date: 20090109
  Serious: Yes (Hospitalization)
  Sender: FDA-Public Use
  Company Number: B0526766A

PATIENT
  Age: 79 Year
  Sex: Female

DRUGS (7)
  1. DEROXAT [Suspect]
     Indication: DRUG USE FOR UNKNOWN INDICATION
     Route: 048
     Dates: start: 20070715, end: 20080417
  2. GALANTAMINE HYDROBROMIDE [Suspect]
     Route: 048
     Dates: start: 20070715, end: 20080417
  3. ATENOLOL [Concomitant]
     Route: 065
  4. COAPROVEL [Concomitant]
     Route: 065
  5. ALDACTONE [Concomitant]
     Route: 065
  6. RILMENIDINE [Concomitant]
     Route: 065
  7. PREVISCAN [Concomitant]
     Route: 048

REACTIONS (9)
  - APHASIA [None]
  - CONFUSIONAL STATE [None]
  - DRUG INTERACTION [None]
  - EPILEPSY [None]
  - GRAND MAL CONVULSION [None]
  - PERSONALITY CHANGE [None]
  - SALIVARY HYPERSECRETION [None]
  - THINKING ABNORMAL [None]
  - URINARY INCONTINENCE [None]
